FAERS Safety Report 8131651-9 (Version None)
Quarter: 2012Q1

REPORT INFORMATION
  Report Type: 
  Country: None (occurrence: None)
  Receive Date: 20120103
  Receipt Date: 20110828
  Transmission Date: 20120608
  Serious: No
  Sender: FDA-Public Use
  Company Number: AE-2011-001175

PATIENT
  Age: 61 Year
  Sex: Female
  Weight: 69.4003 kg

DRUGS (4)
  1. PEGINTERFERON (PEGINTERFERON ALFA-2A) [Concomitant]
  2. INCIVEK [Suspect]
     Dosage: (3 IN 1 D)
     Dates: start: 20110729
  3. REBETOL [Concomitant]
  4. AMBIEN [Concomitant]

REACTIONS (19)
  - DIZZINESS [None]
  - EYEGLASSES THERAPY [None]
  - ANORECTAL DISCOMFORT [None]
  - PRURITUS [None]
  - VOMITING [None]
  - RASH [None]
  - HYPOGLYCAEMIA [None]
  - MOOD SWINGS [None]
  - ABDOMINAL PAIN UPPER [None]
  - PAIN [None]
  - ASTHENIA [None]
  - HAEMORRHOIDS [None]
  - HYPERHIDROSIS [None]
  - DYSPNOEA [None]
  - ANAEMIA [None]
  - EYE PRURITUS [None]
  - ANXIETY [None]
  - DECREASED APPETITE [None]
  - DYSGEUSIA [None]
